FAERS Safety Report 7550277-9 (Version None)
Quarter: 2011Q2

REPORT INFORMATION
  Report Type: 
  Country: None (occurrence: None)
  Receive Date: 20110615
  Receipt Date: 20110610
  Transmission Date: 20111010
  Serious: Yes (Disabling)
  Sender: FDA-Public Use
  Company Number: FR-ABBOTT-11P-056-0730612-00

PATIENT
  Sex: Female

DRUGS (8)
  1. RAMIPRIL [Concomitant]
     Indication: PRODUCT USED FOR UNKNOWN INDICATION
  2. PREVISCAN [Concomitant]
     Indication: PRODUCT USED FOR UNKNOWN INDICATION
  3. ESCITALOPRAM [Suspect]
     Indication: PRODUCT USED FOR UNKNOWN INDICATION
     Route: 048
     Dates: start: 20110207, end: 20110309
  4. ESCITALOPRAM [Suspect]
     Route: 048
     Dates: start: 20110310, end: 20110403
  5. LITHIUM CARBONATE [Suspect]
     Indication: HYPOMANIA
     Route: 048
     Dates: start: 20110403, end: 20110404
  6. PROPRANOLOL [Concomitant]
     Indication: PRODUCT USED FOR UNKNOWN INDICATION
  7. LASIX [Concomitant]
     Indication: PRODUCT USED FOR UNKNOWN INDICATION
  8. DEPAKOTE [Suspect]
     Indication: HYPOMANIA
     Route: 048
     Dates: start: 20110405, end: 20110415

REACTIONS (5)
  - HYPOMANIA [None]
  - BALANCE DISORDER [None]
  - FALL [None]
  - NUCLEAR MAGNETIC RESONANCE IMAGING BRAIN ABNORMAL [None]
  - DYSKINESIA [None]
